FAERS Safety Report 21404004 (Version 1)
Quarter: 2022Q4

REPORT INFORMATION
  Report Type: Spontaneous
  Country: IN (occurrence: IN)
  Receive Date: 20221003
  Receipt Date: 20221003
  Transmission Date: 20230113
  Serious: Yes (Other)
  Sender: FDA-Public Use
  Company Number: IN-AMGEN-INDSP2022167338

PATIENT
  Age: 60 Year
  Sex: Male

DRUGS (11)
  1. PEGFILGRASTIM [Suspect]
     Active Substance: PEGFILGRASTIM
     Indication: Prophylaxis
     Dosage: 6 MILLIGRAM (AS PER INSTRUCTION, FOR EACH CYCLE)
     Route: 058
  2. RITUXIMAB [Concomitant]
     Active Substance: RITUXIMAB
     Dosage: 375 MILLIGRAM/SQ. METER
     Route: 040
  3. CYCLOPHOSPHAMIDE [Concomitant]
     Active Substance: CYCLOPHOSPHAMIDE
     Dosage: 750 MILLIGRAM/SQ. METER
     Route: 040
  4. VINCRISTINE [Concomitant]
     Active Substance: VINCRISTINE
     Dosage: 1.4 MILLIGRAM/SQ. METER
     Route: 040
  5. PREDNISOLONE [Concomitant]
     Active Substance: PREDNISOLONE
     Dosage: 100 MILLIGRAM
     Route: 048
  6. DOXORUBICIN [Concomitant]
     Active Substance: DOXORUBICIN
     Dosage: 50 MILLIGRAM/SQ. METER
     Route: 040
  7. IFOSFAMIDE [Concomitant]
     Active Substance: IFOSFAMIDE
     Dosage: 7000 MILLIGRAM
  8. ETOPOSIDE [Concomitant]
     Active Substance: ETOPOSIDE
     Dosage: 140 MILLIGRAM
  9. CARBOPLATIN [Concomitant]
     Active Substance: CARBOPLATIN
     Dosage: 370 MILLIGRAM
  10. MESNA [Concomitant]
     Active Substance: MESNA
     Dosage: 7000 MILLIGRAM (3500 MG 4 HR BEFORE AND 4 HR AFTER IFOSFAMIDE)
  11. TURPENTINE OIL [Concomitant]
     Active Substance: TURPENTINE OIL

REACTIONS (2)
  - Myiasis [Unknown]
  - B-cell lymphoma recurrent [Unknown]
